FAERS Safety Report 8903815 (Version 3)
Quarter: 2013Q1

REPORT INFORMATION
  Report Type: Spontaneous
  Country: US (occurrence: US)
  Receive Date: 20121112
  Receipt Date: 20130128
  Transmission Date: 20140127
  Serious: Yes (Hospitalization)
  Sender: FDA-Public Use
  Company Number: US-GILEAD-2012-0064362

PATIENT
  Sex: Male

DRUGS (3)
  1. LETAIRIS [Suspect]
     Indication: PULMONARY ARTERIAL HYPERTENSION
     Dosage: 10 MG, QD
     Route: 048
     Dates: start: 20120310
  2. LETAIRIS [Suspect]
     Indication: SYSTEMIC SCLEROSIS
  3. ADCIRCA [Concomitant]

REACTIONS (7)
  - Diarrhoea [Unknown]
  - Fluid retention [Unknown]
  - Nausea [Unknown]
  - Pain in extremity [Unknown]
  - Syncope [Unknown]
  - Headache [Unknown]
  - Oedema [Unknown]
